FAERS Safety Report 4476471-1 (Version None)
Quarter: 2004Q4

REPORT INFORMATION
  Report Type: 
  Country: None (occurrence: None)
  Receive Date: 20041012
  Receipt Date: 20040923
  Transmission Date: 20050328
  Serious: Yes (Other)
  Sender: FDA-Public Use
  Company Number: DSA_25004_2004

PATIENT
  Age: 52 Year
  Sex: Male

DRUGS (3)
  1. TEVETEN [Suspect]
     Indication: HYPERTENSION
     Dosage: 1200 MG Q DAY UNK
     Dates: start: 19980414, end: 19980629
  2. ZESTORETIC [Concomitant]
  3. SUDAFED S.A. [Concomitant]

REACTIONS (2)
  - HYPERSENSITIVITY [None]
  - SKIN LESION [None]
